FAERS Safety Report 24021961 (Version 1)
Quarter: 2024Q2

REPORT INFORMATION
  Report Type: Report from Study
  Country: US (occurrence: US)
  Receive Date: 20240627
  Receipt Date: 20240627
  Transmission Date: 20240716
  Serious: No
  Sender: FDA-Public Use
  Company Number: US-ROCHE-3443317

PATIENT
  Age: 80 Year
  Sex: Female

DRUGS (3)
  1. VABYSMO [Suspect]
     Active Substance: FARICIMAB\FARICIMAB-SVOA
     Indication: Macular degeneration
     Dosage: INJECT 6 MG VIA INTRAVITREAL ADMINISTRATION IN AFFECTED EYES EVERY 4 WEEKS AS NEEDED
     Route: 050
  2. NONOXINOL [Concomitant]
     Active Substance: NONOXYNOL-10
  3. CALCIUM [Concomitant]
     Active Substance: CALCIUM

REACTIONS (2)
  - Off label use [Unknown]
  - No adverse event [Unknown]
